FAERS Safety Report 6808874-1 (Version None)
Quarter: 2010Q2

REPORT INFORMATION
  Report Type: 
  Country: None (occurrence: None)
  Receive Date: 20100630
  Receipt Date: 20091124
  Transmission Date: 20101027
  Serious: No
  Sender: FDA-Public Use
  Company Number: US-PFIZER INC-2009249058

PATIENT
  Age: 66 Year
  Sex: Male
  Weight: 63.5 kg

DRUGS (3)
  1. VIAGRA [Suspect]
     Indication: ERECTILE DYSFUNCTION
     Dosage: FREQUENCY: 1X/DAY, DAILY DOSE: 50 MG
     Route: 048
     Dates: start: 20090729
  2. TOPROL-XL [Concomitant]
     Dosage: 100 MG, 1X/DAY DAILY DOSE: 100 MG
     Route: 048
  3. CASODEX [Concomitant]
     Indication: PROSTATE CANCER
     Dosage: 50 MG, 1X/DAY DAILY DOSE: 50 MG
     Route: 048

REACTIONS (2)
  - DRUG INEFFECTIVE [None]
  - HEADACHE [None]
